FAERS Safety Report 10872150 (Version 3)
Quarter: 2015Q2

REPORT INFORMATION
  Report Type: Report from Study
  Country: NZ (occurrence: NZ)
  Receive Date: 20150226
  Receipt Date: 20150507
  Transmission Date: 20150821
  Serious: Yes (Hospitalization)
  Sender: FDA-Public Use
  Company Number: NZ-EISAI MEDICAL RESEARCH-EC-2015-002920

PATIENT
  Age: 70 Year
  Sex: Female
  Weight: 104.1 kg

DRUGS (12)
  1. PARACETAMOL [Concomitant]
     Active Substance: ACETAMINOPHEN
     Route: 048
     Dates: start: 20110819
  2. SALBUTAMOL [Concomitant]
     Active Substance: ALBUTEROL
     Route: 050
     Dates: start: 20130725
  3. MYLANTA [Concomitant]
     Active Substance: ALUMINUM HYDROXIDE\MAGNESIUM HYDROXIDE\SIMETHICONE
     Route: 058
     Dates: start: 20140911
  4. CETIRIZINE [Concomitant]
     Active Substance: CETIRIZINE HYDROCHLORIDE
     Route: 048
     Dates: start: 20110819
  5. FRUSEMIDE [Concomitant]
     Active Substance: FUROSEMIDE
     Route: 048
     Dates: start: 20110603
  6. CODEINE [Concomitant]
     Active Substance: CODEINE
     Route: 048
     Dates: start: 20110819
  7. PENMIX 30 [Concomitant]
     Route: 058
     Dates: start: 20140527
  8. FLIXONASE [Concomitant]
     Active Substance: FLUTICASONE PROPIONATE
     Route: 045
     Dates: start: 20110819
  9. CHOLECALFERIOL [Concomitant]
     Route: 048
     Dates: start: 20120319
  10. ZOPICLONE [Concomitant]
     Active Substance: ZOPICLONE
     Route: 048
     Dates: start: 20120330
  11. PROVASTATIN [Concomitant]
     Route: 048
     Dates: start: 20120717
  12. LORCASERIN [Suspect]
     Active Substance: LORCASERIN HYDROCHLORIDE
     Indication: WEIGHT CONTROL
     Route: 048
     Dates: start: 20140923, end: 20150106

REACTIONS (1)
  - Myoclonus [Recovering/Resolving]

NARRATIVE: CASE EVENT DATE: 20141224
